FAERS Safety Report 22643119 (Version 1)
Quarter: 2023Q2

REPORT INFORMATION
  Report Type: Spontaneous
  Country: US (occurrence: US)
  Receive Date: 20230627
  Receipt Date: 20230627
  Transmission Date: 20230721
  Serious: Yes (Other)
  Sender: FDA-Public Use
  Company Number: US-STRIDES ARCOLAB LIMITED-2022SP008525

PATIENT
  Sex: Female

DRUGS (10)
  1. VERAPAMIL [Suspect]
     Active Substance: VERAPAMIL HYDROCHLORIDE
     Indication: Neuropsychiatric symptoms
     Dosage: UNK
     Route: 065
     Dates: start: 201301
  2. VERAPAMIL [Suspect]
     Active Substance: VERAPAMIL HYDROCHLORIDE
     Indication: Developmental delay
     Dosage: UNK, DOSE REDUCED
     Route: 065
  3. PROCHLORPERAZINE [Concomitant]
     Active Substance: PROCHLORPERAZINE
     Indication: Neuropsychiatric symptoms
     Dosage: UNK
     Route: 065
     Dates: start: 201207
  4. PROCHLORPERAZINE [Concomitant]
     Active Substance: PROCHLORPERAZINE
     Indication: Developmental delay
  5. LAMOTRIGINE [Concomitant]
     Active Substance: LAMOTRIGINE
     Indication: Neuropsychiatric symptoms
     Dosage: UNK
     Route: 065
     Dates: start: 201301
  6. LAMOTRIGINE [Concomitant]
     Active Substance: LAMOTRIGINE
     Indication: Developmental delay
  7. LITHIUM [Concomitant]
     Active Substance: LITHIUM
     Indication: Neuropsychiatric symptoms
     Dosage: UNK
     Route: 065
     Dates: start: 201301
  8. LITHIUM [Concomitant]
     Active Substance: LITHIUM
     Indication: Developmental delay
  9. KETOROLAC [Concomitant]
     Active Substance: KETOROLAC TROMETHAMINE
     Indication: Neuropsychiatric symptoms
     Dosage: UNK
     Route: 065
     Dates: start: 201207
  10. KETOROLAC [Concomitant]
     Active Substance: KETOROLAC TROMETHAMINE
     Indication: Developmental delay

REACTIONS (3)
  - Atrioventricular block second degree [Unknown]
  - Bradycardia [Unknown]
  - Off label use [Unknown]

NARRATIVE: CASE EVENT DATE: 20130801
